FAERS Safety Report 17457575 (Version 3)
Quarter: 2020Q1

REPORT INFORMATION
  Report Type: Spontaneous
  Country: FR (occurrence: FR)
  Receive Date: 20200225
  Receipt Date: 20200228
  Transmission Date: 20200409
  Serious: Yes (Hospitalization)
  Sender: FDA-Public Use
  Company Number: FR-PFIZER INC-2020082575

PATIENT
  Age: 15 Year
  Sex: Male

DRUGS (6)
  1. ACTISKENAN [Suspect]
     Active Substance: MORPHINE SULFATE
     Dosage: 1 DF, AS NEEDED
     Dates: start: 2019
  2. DALACINE [Suspect]
     Active Substance: CLINDAMYCIN
     Dosage: 1 DF, DAILY (TOTAL)
     Route: 048
     Dates: start: 20200120
  3. KETAMINE [Suspect]
     Active Substance: KETAMINE
     Dosage: 1 DF, AS NEEDED
     Route: 065
     Dates: start: 2019
  4. ACTISKENAN [Suspect]
     Active Substance: MORPHINE SULFATE
     Dosage: 10 MG, UNK
     Route: 048
     Dates: start: 2019
  5. PARACETAMOL [Suspect]
     Active Substance: ACETAMINOPHEN
     Dosage: 1 DF, 1X/DAY
     Route: 048
     Dates: start: 20200120
  6. PANTOPRAZOLE [Suspect]
     Active Substance: PANTOPRAZOLE
     Dosage: 5 DF, (TOTAL)
     Route: 065
     Dates: start: 20200120

REACTIONS (2)
  - Drug abuse [Not Recovered/Not Resolved]
  - Poisoning [Recovered/Resolved]

NARRATIVE: CASE EVENT DATE: 2019
